FAERS Safety Report 18573965 (Version 1)
Quarter: 2020Q4

REPORT INFORMATION
  Report Type: Spontaneous
  Country: CN (occurrence: CN)
  Receive Date: 20201203
  Receipt Date: 20201203
  Transmission Date: 20210114
  Serious: Yes (Hospitalization, Other)
  Sender: FDA-Public Use
  Company Number: CN-ASTRAZENECA-2020SF58949

PATIENT
  Age: 28613 Day
  Sex: Male
  Weight: 55 kg

DRUGS (3)
  1. PLAVIX [Suspect]
     Active Substance: CLOPIDOGREL BISULFATE
     Indication: AORTIC ANEURYSM
     Route: 048
     Dates: start: 20201009, end: 20201109
  2. CRESTOR [Suspect]
     Active Substance: ROSUVASTATIN CALCIUM
     Indication: AORTIC ANEURYSM
     Route: 048
     Dates: start: 20201009, end: 20201109
  3. THYROZOL [Suspect]
     Active Substance: METHIMAZOLE
     Indication: HYPERTHYROIDISM
     Route: 048
     Dates: start: 20200907, end: 20201030

REACTIONS (2)
  - Cardiac dysfunction [Unknown]
  - Jaundice [Recovered/Resolved]

NARRATIVE: CASE EVENT DATE: 20201025
